FAERS Safety Report 11324062 (Version 6)
Quarter: 2015Q3

REPORT INFORMATION
  Report Type: Report from Study
  Country: CH (occurrence: CH)
  Receive Date: 20150730
  Receipt Date: 20150904
  Transmission Date: 20151125
  Serious: Yes (Hospitalization, Other)
  Sender: FDA-Public Use
  Company Number: CH-ABBVIE-15P-151-1417164-00

PATIENT
  Age: 47 Year
  Sex: Male

DRUGS (2)
  1. DUODOPA [Suspect]
     Active Substance: CARBIDOPA\LEVODOPA
     Indication: PARKINSON^S DISEASE
     Dosage: MD 6ML, CD DAY 7.6ML/H  CD NIGHT 4.3ML/H, ED 1.5ML
     Route: 050
     Dates: start: 201003, end: 20150723
  2. DUODOPA [Suspect]
     Active Substance: CARBIDOPA\LEVODOPA
     Dosage: MD 6ML, CD DAY 7.6ML/H  CD NIGHT 4.3ML/H, ED 1.5ML
     Route: 050
     Dates: start: 20150724

REACTIONS (18)
  - Device issue [Unknown]
  - Purulence [Unknown]
  - Fistula [Unknown]
  - Diabetes mellitus [Not Recovered/Not Resolved]
  - Procedural pain [Unknown]
  - Purulent discharge [Unknown]
  - Inflammation [Recovering/Resolving]
  - Cholangiocarcinoma [Unknown]
  - Abscess [Unknown]
  - Stoma site reaction [Unknown]
  - Incorrect dose administered [Unknown]
  - Haemangioma of liver [Unknown]
  - Stoma site induration [Unknown]
  - Stoma site pain [Unknown]
  - Abscess [Recovered/Resolved]
  - Device alarm issue [Recovered/Resolved]
  - Muscle strain [Unknown]
  - Device dislocation [Not Recovered/Not Resolved]

NARRATIVE: CASE EVENT DATE: 20150724
